FAERS Safety Report 5720730-9 (Version None)
Quarter: 2008Q2

REPORT INFORMATION
  Report Type: 
  Country: None (occurrence: None)
  Receive Date: 20080429
  Receipt Date: 20080429
  Transmission Date: 20081010
  Serious: Yes (Life-Threatening, Hospitalization)
  Sender: FDA-Public Use
  Company Number: None

PATIENT
  Age: 80 Year
  Sex: Female
  Weight: 72.5755 kg

DRUGS (1)
  1. HEPARIN [Suspect]
     Indication: THROMBOSIS
     Dates: start: 20071102, end: 20071109

REACTIONS (5)
  - DYSPNOEA [None]
  - HYPOTENSION [None]
  - LUNG DISORDER [None]
  - SWELLING [None]
  - TRACHEAL DISORDER [None]
